FAERS Safety Report 16610105 (Version 1)
Quarter: 2019Q3

REPORT INFORMATION
  Report Type: Spontaneous
  Country: FR (occurrence: FR)
  Receive Date: 20190722
  Receipt Date: 20190722
  Transmission Date: 20191004
  Serious: Yes (Death, Other)
  Sender: FDA-Public Use
  Company Number: FR-ASTRAZENECA-2019SF04420

PATIENT
  Age: 71 Year
  Sex: Female

DRUGS (4)
  1. LYNPARZA [Suspect]
     Active Substance: OLAPARIB
     Dosage: REDUCED DOSE
     Route: 048
  2. LYNPARZA [Suspect]
     Active Substance: OLAPARIB
     Route: 048
     Dates: start: 2018
  3. LYNPARZA [Suspect]
     Active Substance: OLAPARIB
     Dosage: 2 CAPSULES IN THE MORNING AND IN THE EVENING
     Route: 048
     Dates: end: 201905
  4. LYNPARZA [Suspect]
     Active Substance: OLAPARIB
     Route: 048
     Dates: start: 201806

REACTIONS (2)
  - Acute kidney injury [Fatal]
  - Adverse drug reaction [Unknown]
